FAERS Safety Report 19877117 (Version 2)
Quarter: 2022Q3

REPORT INFORMATION
  Report Type: Report from Study
  Country: CN (occurrence: CN)
  Receive Date: 20210923
  Receipt Date: 20220720
  Transmission Date: 20221027
  Serious: Yes (Hospitalization, Other)
  Sender: FDA-Public Use
  Company Number: CN-PFIZER INC-202101212059

PATIENT
  Age: 18 Year
  Sex: Female

DRUGS (10)
  1. TIGECYCLINE [Suspect]
     Active Substance: TIGECYCLINE
     Indication: Klebsiella infection
     Dosage: 50 MG, Q12H
     Route: 041
  2. TIGECYCLINE [Suspect]
     Active Substance: TIGECYCLINE
     Dosage: MONOTHERAPY
  3. MEROPENEM [Suspect]
     Active Substance: MEROPENEM
     Indication: Klebsiella infection
     Dosage: 1.0 G, Q8H, IV PUMP FOR 3 H/ DOSE
     Route: 042
  4. POLYMYXIN B [Concomitant]
     Active Substance: POLYMYXIN B
     Dosage: 500000 U, Q12H
  5. HYDROGEN PEROXIDE [Concomitant]
     Active Substance: HYDROGEN PEROXIDE
     Dosage: UNK
  6. POVIDONE-IODINE [Concomitant]
     Active Substance: POVIDONE-IODINE
     Dosage: UNK
  7. SULFANILAMIDE [Concomitant]
     Active Substance: SULFANILAMIDE
     Dosage: UNK
  8. TACROLIMUS [Concomitant]
     Active Substance: TACROLIMUS
     Indication: Immunosuppression
     Dosage: UNK
     Route: 048
  9. MYCOPHENOLATE MOFETIL HYDROCHLORIDE [Concomitant]
     Active Substance: MYCOPHENOLATE MOFETIL HYDROCHLORIDE
     Indication: Immunosuppression
     Dosage: UNK
  10. METHYLPREDNISOLONE [Concomitant]
     Active Substance: METHYLPREDNISOLONE
     Indication: Immunosuppression

REACTIONS (2)
  - Drug ineffective [Unknown]
  - Blood bilirubin increased [Recovered/Resolved]
